FAERS Safety Report 5027803-7 (Version None)
Quarter: 2006Q2

REPORT INFORMATION
  Report Type: 
  Country: None (occurrence: None)
  Receive Date: 20060616
  Receipt Date: 20060613
  Transmission Date: 20061013
  Serious: Yes (Death, Life-Threatening)
  Sender: FDA-Public Use
  Company Number: PHBS2006JP08857

PATIENT
  Age: 47 Year
  Sex: Male

DRUGS (5)
  1. VOLTAREN [Suspect]
     Indication: ANTIPYRESIS
     Dosage: 50 MG/DAY
     Route: 054
     Dates: start: 20060428
  2. LACTEC [Concomitant]
     Indication: ANTIPYRESIS
     Dosage: 1000 ML, UNK
     Dates: start: 20060428
  3. CARBENIN [Concomitant]
     Dosage: 1.5 G, UNK
     Dates: start: 20060428
  4. ALEVIATIN [Concomitant]
     Dosage: 250 MG, UNK
     Route: 042
     Dates: start: 20060428
  5. FUTHAN [Concomitant]
     Dosage: 50 MG, UNK
     Dates: start: 20060428

REACTIONS (10)
  - BLOOD CREATININE INCREASED [None]
  - BLOOD PRESSURE DECREASED [None]
  - BLOOD SODIUM DECREASED [None]
  - BLOOD UREA INCREASED [None]
  - CONVULSION [None]
  - DEPRESSED LEVEL OF CONSCIOUSNESS [None]
  - KLEBSIELLA INFECTION [None]
  - MENINGITIS BACTERIAL [None]
  - RENAL IMPAIRMENT [None]
  - SHOCK [None]
